FAERS Safety Report 8725756 (Version 5)
Quarter: 2018Q3

REPORT INFORMATION
  Report Type: Spontaneous
  Country: BR (occurrence: BR)
  Receive Date: 20120816
  Receipt Date: 20180925
  Transmission Date: 20181010
  Serious: Yes (Other)
  Sender: FDA-Public Use
  Company Number: BR-AMGEN-BRASP2012051179

PATIENT
  Age: 64 Year
  Sex: Female
  Weight: 57.96 kg

DRUGS (9)
  1. ENBREL [Suspect]
     Active Substance: ETANERCEPT
     Dosage: UNK
     Route: 065
     Dates: start: 201804
  2. PREDNISONE. [Concomitant]
     Active Substance: PREDNISONE
     Dosage: UNK
  3. NIMESULIDE [Concomitant]
     Active Substance: NIMESULIDE
     Dosage: UNK
  4. PREDNISONE. [Concomitant]
     Active Substance: PREDNISONE
     Dosage: UNK
  5. NIMESULIDE [Concomitant]
     Active Substance: NIMESULIDE
     Dosage: UNK
  6. BENEGRIP [Concomitant]
     Dosage: UNK
  7. FOLIC ACID. [Concomitant]
     Active Substance: FOLIC ACID
     Dosage: UNK
  8. FOLIC ACID. [Concomitant]
     Active Substance: FOLIC ACID
     Indication: ANAEMIA
     Dosage: UNK
  9. ENBREL [Suspect]
     Active Substance: ETANERCEPT
     Indication: RHEUMATOID ARTHRITIS
     Dosage: 50 MG, ONCE WEEKLY
     Route: 058
     Dates: start: 201203, end: 201210

REACTIONS (10)
  - Vomiting [Unknown]
  - Umbilical hernia [Unknown]
  - Feeling abnormal [Unknown]
  - Liver disorder [Unknown]
  - Gait disturbance [Unknown]
  - Finger deformity [Unknown]
  - Intentional product misuse [Unknown]
  - Foot deformity [Unknown]
  - Infection [Not Recovered/Not Resolved]
  - Appendicitis perforated [Unknown]

NARRATIVE: CASE EVENT DATE: 2012
